FAERS Safety Report 20049028 (Version 3)
Quarter: 2021Q4

REPORT INFORMATION
  Report Type: Spontaneous
  Country: SE (occurrence: SE)
  Receive Date: 20211109
  Receipt Date: 20211228
  Transmission Date: 20220303
  Serious: Yes (Other)
  Sender: FDA-Public Use
  Company Number: SE-ABBVIE-21K-150-4149036-00

PATIENT
  Age: 5 Year
  Sex: Male

DRUGS (17)
  1. VALPROIC ACID [Suspect]
     Active Substance: VALPROIC ACID
     Indication: Product used for unknown indication
     Route: 065
  2. QUETIAPINE FUMARATE [Suspect]
     Active Substance: QUETIAPINE FUMARATE
     Indication: Product used for unknown indication
     Route: 065
  3. ARIPIPRAZOLE [Suspect]
     Active Substance: ARIPIPRAZOLE
     Indication: Product used for unknown indication
     Route: 065
  4. LITHIUM [Suspect]
     Active Substance: LITHIUM
     Indication: Product used for unknown indication
     Route: 065
  5. CLONIDINE [Suspect]
     Active Substance: CLONIDINE
     Indication: Product used for unknown indication
     Route: 065
  6. CHLORPROMAZINE [Suspect]
     Active Substance: CHLORPROMAZINE
     Indication: Product used for unknown indication
     Route: 065
  7. CARBAMAZEPINE [Suspect]
     Active Substance: CARBAMAZEPINE
     Indication: Product used for unknown indication
     Route: 065
  8. ZIPRASIDONE [Suspect]
     Active Substance: ZIPRASIDONE
     Indication: Product used for unknown indication
     Route: 065
  9. ATOMOXETINE HYDROCHLORIDE [Suspect]
     Active Substance: ATOMOXETINE HYDROCHLORIDE
     Indication: Product used for unknown indication
     Route: 065
  10. AMPHETAMINE [Suspect]
     Active Substance: AMPHETAMINE
     Indication: Product used for unknown indication
     Route: 065
  11. METHYLPHENIDATE [Suspect]
     Active Substance: METHYLPHENIDATE
     Indication: Product used for unknown indication
     Route: 065
  12. ILOPERIDONE [Suspect]
     Active Substance: ILOPERIDONE
     Indication: Product used for unknown indication
     Route: 065
  13. DEXTROAMPHETAMINE [Suspect]
     Active Substance: DEXTROAMPHETAMINE
     Indication: Product used for unknown indication
     Route: 065
  14. LISDEXAMFETAMINE [Suspect]
     Active Substance: LISDEXAMFETAMINE
     Indication: Product used for unknown indication
     Route: 065
  15. ALBUTEROL [Suspect]
     Active Substance: ALBUTEROL
     Indication: Product used for unknown indication
     Route: 065
  16. MONTELUKAST [Suspect]
     Active Substance: MONTELUKAST SODIUM
     Indication: Product used for unknown indication
     Route: 065
  17. CETIRIZINE [Suspect]
     Active Substance: CETIRIZINE HYDROCHLORIDE
     Indication: Product used for unknown indication
     Route: 065

REACTIONS (30)
  - Homicidal ideation [Unknown]
  - Sydenham^s chorea [Unknown]
  - Speech disorder [Unknown]
  - Streptococcal infection [Unknown]
  - Bruxism [Unknown]
  - Decreased eye contact [Unknown]
  - Crying [Unknown]
  - Choreoathetosis [Unknown]
  - Hyperkinesia [Unknown]
  - Depressed mood [Unknown]
  - Trismus [Not Recovered/Not Resolved]
  - Coordination abnormal [Unknown]
  - Fatigue [Unknown]
  - Oppositional defiant disorder [Unknown]
  - Poor quality sleep [Unknown]
  - Sleep disorder [Unknown]
  - Psychomotor hyperactivity [Unknown]
  - Anxiety [Unknown]
  - Suicidal ideation [Unknown]
  - Hypersensitivity [Not Recovered/Not Resolved]
  - Insomnia [Unknown]
  - Irritability [Unknown]
  - Dyskinesia [Unknown]
  - Aggression [Unknown]
  - Mood altered [Unknown]
  - Drug ineffective [Unknown]
  - Affect lability [Unknown]
  - Eye disorder [Unknown]
  - Nervousness [Unknown]
  - Vision blurred [Unknown]
